FAERS Safety Report 5719644-X (Version None)
Quarter: 2008Q2

REPORT INFORMATION
  Report Type: 
  Country: None (occurrence: None)
  Receive Date: 20080423
  Receipt Date: 20070310
  Transmission Date: 20081010
  Serious: Yes (Other)
  Sender: FDA-Public Use
  Company Number: 236695

PATIENT
  Sex: Male

DRUGS (4)
  1. AVASTIN [Suspect]
     Indication: COLORECTAL CANCER METASTATIC
     Dates: end: 20060901
  2. FLUOROURACIL [Concomitant]
  3. LEUCOVORIN (LEUCOORIN CALCIUM) [Concomitant]
  4. OXALIPLATIN [Concomitant]

REACTIONS (1)
  - DISEASE PROGRESSION [None]
